FAERS Safety Report 7117240-3 (Version None)
Quarter: 2010Q4

REPORT INFORMATION
  Report Type: 
  Country: None (occurrence: None)
  Receive Date: 20101112
  Receipt Date: 20101101
  Transmission Date: 20110411
  Serious: Yes (Death)
  Sender: FDA-Public Use
  Company Number: 2010MA004104

PATIENT
  Age: 28 Year
  Sex: Male

DRUGS (5)
  1. OXYCODONE HCL [Suspect]
  2. CITALOPRAM HYDROBROMIDE [Suspect]
  3. ALCOHOL (ETHANOL) [Suspect]
  4. CON MEDS [Concomitant]
  5. PREV MEDS [Concomitant]

REACTIONS (3)
  - NARCOTIC INTOXICATION [None]
  - OVERDOSE [None]
  - UNRESPONSIVE TO STIMULI [None]
